FAERS Safety Report 9163469 (Version 1)
Quarter: 2013Q1

REPORT INFORMATION
  Report Type: Spontaneous
  Country: US (occurrence: None)
  Receive Date: 20130226
  Receipt Date: 20130226
  Transmission Date: 20140127
  Serious: Yes (Other)
  Sender: FDA-Public Use
  Company Number: 2523595-2013-00010

PATIENT
  Age: 82 None
  Sex: Male
  Weight: 82.4 kg

DRUGS (1)
  1. UVADEX [Suspect]
     Dates: start: 20130211

REACTIONS (1)
  - Haematuria [None]
